FAERS Safety Report 13568434 (Version 1)
Quarter: 2017Q2

REPORT INFORMATION
  Report Type: Spontaneous
  Country: GB (occurrence: GB)
  Receive Date: 20170522
  Receipt Date: 20170522
  Transmission Date: 20170830
  Serious: Yes (Other)
  Sender: FDA-Public Use
  Company Number: GB-PFIZER INC-2017216910

PATIENT
  Age: 24 Year
  Sex: Female
  Weight: 71 kg

DRUGS (5)
  1. NORETHISTERONE [Concomitant]
     Active Substance: NORETHINDRONE
     Dosage: 1 DF, 3X/DAY
     Dates: start: 20150417, end: 20170508
  2. OTOMIZE [Concomitant]
     Active Substance: DEXAMETHASONE\NEOMYCIN SULFATE
     Dosage: 1 DF, 3X/DAY
     Dates: start: 20170223, end: 20170302
  3. NAPROXEN. [Concomitant]
     Active Substance: NAPROXEN
     Dosage: 1 DF, 2X/DAY
     Dates: start: 20140205
  4. DEPO-PROVERA [Suspect]
     Active Substance: MEDROXYPROGESTERONE ACETATE
     Dosage: UNK
     Dates: start: 20170508
  5. CO-DYDRAMOL [Concomitant]
     Active Substance: ACETAMINOPHEN\DIHYDROCODEINE
     Dosage: UNK (TAKE 1- 2 FOUR TO SIX HOURLY, MAX 8 IN 2)
     Dates: start: 20131015

REACTIONS (1)
  - Henoch-Schonlein purpura [Unknown]

NARRATIVE: CASE EVENT DATE: 20170508
